FAERS Safety Report 6581025-7 (Version None)
Quarter: 2010Q1

REPORT INFORMATION
  Report Type: 
  Country: None (occurrence: None)
  Receive Date: 20100215
  Receipt Date: 20100202
  Transmission Date: 20100710
  Serious: Yes (Hospitalization, Other)
  Sender: FDA-Public Use
  Company Number: CA-ELI_LILLY_AND_COMPANY-CA201002000953

PATIENT
  Age: 59 Year
  Sex: Male

DRUGS (12)
  1. FORTEO [Suspect]
     Indication: OSTEOPOROSIS
     Dosage: 20 UG, DAILY (1/D)
     Route: 058
     Dates: start: 20090327, end: 20091209
  2. VITAMIN B-12 [Concomitant]
     Dosage: UNK, UNKNOWN
     Route: 065
  3. LIPITOR [Concomitant]
     Dosage: UNK, UNKNOWN
     Route: 065
  4. SUPEUDOL [Concomitant]
     Dosage: UNK, UNKNOWN
     Route: 065
  5. CALCIUM [Concomitant]
     Dosage: UNK, UNKNOWN
     Route: 065
  6. CLONAZEPAM [Concomitant]
     Dosage: UNK, UNKNOWN
     Route: 065
  7. PANTOLOC /01263201/ [Concomitant]
     Dosage: UNK, UNKNOWN
     Route: 065
  8. PREDNISONE [Concomitant]
     Dosage: UNK, UNKNOWN
     Route: 065
  9. MYFORTIC [Concomitant]
     Dosage: UNK, UNKNOWN
     Route: 065
  10. APO-SULFATRIM [Concomitant]
     Dosage: UNK, UNKNOWN
     Route: 065
  11. PROGRAF [Concomitant]
     Dosage: UNK, UNKNOWN
     Route: 065
  12. TYLENOL (CAPLET) [Concomitant]
     Dosage: UNK, UNKNOWN
     Route: 065

REACTIONS (4)
  - ANAEMIA [None]
  - BACK PAIN [None]
  - PNEUMONIA [None]
  - RENAL IMPAIRMENT [None]
